FAERS Safety Report 5170625-7 (Version None)
Quarter: 2006Q4

REPORT INFORMATION
  Report Type: 
  Country: None (occurrence: None)
  Receive Date: 20061205
  Receipt Date: 20061123
  Transmission Date: 20070319
  Serious: Yes (Other)
  Sender: FDA-Public Use
  Company Number: 2006145142

PATIENT
  Sex: Male

DRUGS (1)
  1. GABAPENTIN [Suspect]
     Indication: PAIN
     Dosage: 3600 MG (1200 MG, 3 IN 1 D), ORAL
     Route: 048

REACTIONS (3)
  - DRUG EFFECT DECREASED [None]
  - INADEQUATE ANALGESIA [None]
  - SEDATION [None]
